FAERS Safety Report 20561782 (Version 1)
Quarter: 2022Q1

REPORT INFORMATION
  Report Type: Spontaneous
  Country: US (occurrence: US)
  Receive Date: 20220307
  Receipt Date: 20220307
  Transmission Date: 20220423
  Serious: Yes (Hospitalization)
  Sender: FDA-Public Use
  Company Number: US-AVEO ONCOLOGY-2021-AVEO-US003596

PATIENT

DRUGS (2)
  1. FOTIVDA [Suspect]
     Active Substance: TIVOZANIB HYDROCHLORIDE
     Indication: Renal cell carcinoma
     Dosage: 1.34 MG, DAILY
     Route: 048
     Dates: start: 20210804
  2. ELIQUIS [Concomitant]
     Active Substance: APIXABAN

REACTIONS (9)
  - Pleural effusion [Unknown]
  - Pneumothorax [Unknown]
  - Blood pressure increased [Unknown]
  - Fatigue [Unknown]
  - Pulmonary mass [Unknown]
  - Diaphragmatic spasm [Unknown]
  - Oral discomfort [Unknown]
  - Hyperkeratosis [Unknown]
  - Skin haemorrhage [Unknown]
